FAERS Safety Report 20231430 (Version 1)
Quarter: 2021Q4

REPORT INFORMATION
  Report Type: Spontaneous
  Country: US (occurrence: None)
  Receive Date: 20211223
  Receipt Date: 20211223
  Transmission Date: 20220303
  Serious: Yes (Hospitalization)
  Sender: FDA-Public Use
  Company Number: None

PATIENT
  Age: 36 Year
  Sex: Female

DRUGS (1)
  1. BAMLANIVIMAB\ETESEVIMAB [Suspect]
     Active Substance: BAMLANIVIMAB\ETESEVIMAB
     Indication: COVID-19
     Route: 042
     Dates: start: 20211210, end: 20211210

REACTIONS (8)
  - Pulmonary embolism [None]
  - COVID-19 pneumonia [None]
  - Fibrin D dimer increased [None]
  - Acute respiratory failure [None]
  - Bacterial infection [None]
  - Superinfection [None]
  - Deep vein thrombosis [None]
  - Sinus tachycardia [None]

NARRATIVE: CASE EVENT DATE: 20211213
